FAERS Safety Report 25591245 (Version 1)
Quarter: 2025Q3

REPORT INFORMATION
  Report Type: Spontaneous
  Country: EU (occurrence: EU)
  Receive Date: 20250722
  Receipt Date: 20250722
  Transmission Date: 20251020
  Serious: Yes (Other)
  Sender: TEVA
  Company Number: EU-TEVA-VS-3353334

PATIENT
  Age: 64 Year
  Sex: Female

DRUGS (5)
  1. FENTANYL [Interacting]
     Active Substance: FENTANYL
     Indication: Anaesthesia
     Route: 042
  2. AMITRIPTYLINE [Interacting]
     Active Substance: AMITRIPTYLINE
     Indication: Depression
     Route: 065
  3. SEVOFLURANE [Interacting]
     Active Substance: SEVOFLURANE
     Indication: Anaesthesia
     Route: 042
  4. REMIFENTANIL [Interacting]
     Active Substance: REMIFENTANIL
     Indication: Anaesthesia
     Route: 042
  5. PROPOFOL [Interacting]
     Active Substance: PROPOFOL
     Indication: Anaesthesia
     Route: 042

REACTIONS (2)
  - Hypotension [Unknown]
  - Drug interaction [Unknown]
